FAERS Safety Report 11595446 (Version 1)
Quarter: 2015Q4

REPORT INFORMATION
  Report Type: Spontaneous
  Country: US (occurrence: US)
  Receive Date: 20151006
  Receipt Date: 20151006
  Transmission Date: 20160304
  Serious: No
  Sender: FDA-Public Use
  Company Number: US-BRISTOL-MYERS SQUIBB COMPANY-BMS-2015-066522

PATIENT
  Sex: Female

DRUGS (1)
  1. ORENCIA [Suspect]
     Active Substance: ABATACEPT
     Indication: PRODUCT USED FOR UNKNOWN INDICATION
     Dosage: UNK, QWK
     Route: 058
     Dates: start: 20150927

REACTIONS (7)
  - Tremor [Unknown]
  - Malaise [Unknown]
  - Dysstasia [Unknown]
  - Vomiting [Unknown]
  - Nausea [Unknown]
  - Hyperhidrosis [Unknown]
  - Back pain [Unknown]
